FAERS Safety Report 10185623 (Version 1)
Quarter: 2014Q2

REPORT INFORMATION
  Report Type: Spontaneous
  Country: US (occurrence: US)
  Receive Date: 20140521
  Receipt Date: 20140521
  Transmission Date: 20141212
  Serious: Yes (Hospitalization, Other)
  Sender: FDA-Public Use
  Company Number: US-WATSON-2014-10038

PATIENT
  Age: 74 Year
  Sex: Male
  Weight: 75 kg

DRUGS (2)
  1. TESTOSTERONE CYPIONATE (WATSON LABORATORIES) [Suspect]
     Indication: BLOOD TESTOSTERONE DECREASED
     Dosage: 1 ML, 1/TWO WEEKS
     Route: 030
     Dates: end: 20131201
  2. LIPITOR [Concomitant]
     Indication: BLOOD CHOLESTEROL INCREASED
     Dosage: 20 MG, DAILY
     Route: 048

REACTIONS (1)
  - Thrombosis [Recovering/Resolving]
